FAERS Safety Report 16895947 (Version 1)
Quarter: 2019Q4

REPORT INFORMATION
  Report Type: Spontaneous
  Country: US (occurrence: US)
  Receive Date: 20191008
  Receipt Date: 20191008
  Transmission Date: 20200122
  Serious: No
  Sender: FDA-Public Use
  Company Number: US-PERRIGO-19US001859

PATIENT
  Age: 66 Year
  Sex: Female
  Weight: 90.7 kg

DRUGS (6)
  1. VITAMINS NOS [Concomitant]
     Active Substance: VITAMINS
     Indication: SUPPLEMENTATION THERAPY
     Dosage: UNK
     Route: 065
  2. ALBUTEROL                          /00139501/ [Concomitant]
     Active Substance: ALBUTEROL
     Indication: ASTHMA
     Dosage: UNK, PRN
     Route: 065
  3. IMIQUIMOD. [Suspect]
     Active Substance: IMIQUIMOD
     Indication: BASAL CELL CARCINOMA
     Dosage: UNKNOWN, UNKNOWN
     Route: 061
  4. SUMATRIPTAN. [Concomitant]
     Active Substance: SUMATRIPTAN
     Indication: MIGRAINE
     Dosage: UNK, PRN
     Route: 065
  5. IMIQUIMOD. [Suspect]
     Active Substance: IMIQUIMOD
     Dosage: UP TO 1 PACKET, NIGHTLY
     Route: 061
     Dates: start: 20190125, end: 20190203
  6. IMIQUIMOD. [Suspect]
     Active Substance: IMIQUIMOD
     Dosage: UP TO 1 PACKET, NIGHTLY
     Route: 061
     Dates: start: 20190206

REACTIONS (9)
  - Product administered at inappropriate site [Not Recovered/Not Resolved]
  - Application site pruritus [Recovered/Resolved]
  - Headache [Unknown]
  - Application site pain [Recovered/Resolved]
  - Application site vesicles [Not Recovered/Not Resolved]
  - Inappropriate schedule of product administration [Recovered/Resolved]
  - Application site erythema [Recovered/Resolved]
  - Application site scab [Not Recovered/Not Resolved]
  - Fatigue [Not Recovered/Not Resolved]

NARRATIVE: CASE EVENT DATE: 20190125
